FAERS Safety Report 8014398-9 (Version None)
Quarter: 2011Q4

REPORT INFORMATION
  Report Type: 
  Country: None (occurrence: None)
  Receive Date: 20111229
  Receipt Date: 20111227
  Transmission Date: 20120403
  Serious: Yes (Death)
  Sender: FDA-Public Use
  Company Number: US-CELGENEUS-163-21880-11123449

PATIENT
  Sex: Male
  Weight: 79.904 kg

DRUGS (3)
  1. EXJADE [Concomitant]
     Indication: MYELODYSPLASTIC SYNDROME
     Dosage: 1500 MILLIGRAM
     Route: 048
     Dates: start: 20100325
  2. EXJADE [Concomitant]
     Indication: THROMBOCYTOPENIC PURPURA
  3. REVLIMID [Suspect]
     Indication: MYELODYSPLASTIC SYNDROME
     Dosage: 15 MILLIGRAM
     Route: 048
     Dates: start: 20111017

REACTIONS (1)
  - DEATH [None]
